FAERS Safety Report 14948572 (Version 1)
Quarter: 2018Q2

REPORT INFORMATION
  Report Type: Report from Study
  Country: IT (occurrence: IT)
  Receive Date: 20180529
  Receipt Date: 20180529
  Transmission Date: 20180711
  Serious: Yes (Hospitalization)
  Sender: FDA-Public Use
  Company Number: IT-PFIZER INC-2018213971

PATIENT
  Age: 47 Year
  Sex: Female
  Weight: 80 kg

DRUGS (5)
  1. AUGMENTIN [Suspect]
     Active Substance: AMOXICILLIN\CLAVULANATE POTASSIUM
     Indication: MASTITIS
     Dosage: 1 DF, 1X/DAY
     Route: 048
  2. CEFODOX [Suspect]
     Active Substance: CEFPODOXIME PROXETIL
     Indication: MASTITIS
     Dosage: 200 MG, 1X/DAY
     Route: 048
  3. EUTIROX [Concomitant]
     Active Substance: LEVOTHYROXINE SODIUM
     Dosage: 75 UG, UNK
  4. ZITROMAX [Suspect]
     Active Substance: AZITHROMYCIN
     Indication: MASTITIS
     Dosage: 500 MG, 1X/DAY
     Route: 048
  5. SYNFLEX /00256202/ [Suspect]
     Active Substance: NAPROXEN SODIUM
     Indication: PAIN
     Dosage: 1 DF, SINGLE
     Route: 048

REACTIONS (2)
  - Generalised oedema [Recovering/Resolving]
  - Urticaria [Recovering/Resolving]

NARRATIVE: CASE EVENT DATE: 20180326
